FAERS Safety Report 5092070-5 (Version None)
Quarter: 2006Q3

REPORT INFORMATION
  Report Type: 
  Country: None (occurrence: None)
  Receive Date: 20060825
  Receipt Date: 20060809
  Transmission Date: 20061208
  Serious: Yes (Other)
  Sender: FDA-Public Use
  Company Number: SPV1-2006-00469

PATIENT
  Age: 48 Year
  Sex: Female

DRUGS (4)
  1. PENTASA [Suspect]
     Indication: CROHN'S DISEASE
     Dosage: 2 G DAILY, ORAL
     Route: 048
     Dates: start: 20040401, end: 20060401
  2. OMEPRAZOLE [Concomitant]
  3. AZATHIOPRINE [Concomitant]
  4. CORTICOSTEROIDS [Concomitant]

REACTIONS (1)
  - AUTOIMMUNE HEPATITIS [None]
